FAERS Safety Report 5200452-3 (Version None)
Quarter: 2006Q4

REPORT INFORMATION
  Report Type: 
  Country: None (occurrence: None)
  Receive Date: 20061016
  Receipt Date: 20060821
  Transmission Date: 20070319
  Serious: No
  Sender: FDA-Public Use
  Company Number: 2006SP003070

PATIENT
  Age: 54 Year
  Sex: Female

DRUGS (5)
  1. LUNESTA [Suspect]
     Indication: INSOMNIA
     Dosage: 3 MG; ORAL
     Route: 048
     Dates: start: 20060817, end: 20060818
  2. AVALIDE [Concomitant]
  3. METFORMIN HCL [Concomitant]
  4. VYTORIN [Concomitant]
  5. TYLENOL [Concomitant]

REACTIONS (3)
  - DRUG INEFFECTIVE [None]
  - INSOMNIA [None]
  - IRRITABILITY [None]
